FAERS Safety Report 18535499 (Version 1)
Quarter: 2020Q4

REPORT INFORMATION
  Report Type: Spontaneous
  Country: CZ (occurrence: CZ)
  Receive Date: 20201123
  Receipt Date: 20201123
  Transmission Date: 20210114
  Serious: Yes (Other)
  Sender: FDA-Public Use
  Company Number: CZ-MYLANLABS-2020M1095912

PATIENT
  Age: 31 Year
  Sex: Female

DRUGS (1)
  1. PACLITAXEL. [Suspect]
     Active Substance: PACLITAXEL
     Indication: MESOTHELIOMA MALIGNANT
     Dosage: UNK, WEEKLY
     Dates: start: 201607

REACTIONS (2)
  - Neuropathy peripheral [Unknown]
  - Livedo reticularis [Unknown]
